FAERS Safety Report 16463878 (Version 3)
Quarter: 2019Q3

REPORT INFORMATION
  Report Type: Spontaneous
  Country: CH (occurrence: CH)
  Receive Date: 20190621
  Receipt Date: 20190726
  Transmission Date: 20191004
  Serious: Yes (Other)
  Sender: FDA-Public Use
  Company Number: CH-SA-2019SA134139

PATIENT
  Age: 17 Year
  Sex: Female

DRUGS (3)
  1. FABRAZYME [Suspect]
     Active Substance: AGALSIDASE BETA
     Indication: FABRY^S DISEASE
  2. FABRAZYME [Suspect]
     Active Substance: AGALSIDASE BETA
     Indication: BIOPSY KIDNEY
     Dosage: 1 MG/KG, QOW
     Route: 041
     Dates: start: 20190128, end: 20190415
  3. FABRAZYME [Suspect]
     Active Substance: AGALSIDASE BETA
     Indication: PARAESTHESIA

REACTIONS (3)
  - Dysphemia [Recovered/Resolved]
  - Headache [Recovered/Resolved]
  - Pain in extremity [Recovered/Resolved]
